FAERS Safety Report 20554817 (Version 1)
Quarter: 2022Q1

REPORT INFORMATION
  Report Type: Spontaneous
  Country: US (occurrence: None)
  Receive Date: 20220304
  Receipt Date: 20220304
  Transmission Date: 20220424
  Serious: No
  Sender: FDA-Public Use
  Company Number: None

PATIENT
  Age: 58 Year
  Sex: Female
  Weight: 108 kg

DRUGS (2)
  1. DEFINITY [Suspect]
     Active Substance: PERFLUTREN
     Dosage: OTHER FREQUENCY : ONCE;?
     Route: 042
  2. DEFINITY [Concomitant]
     Active Substance: PERFLUTREN
     Dates: start: 20220304, end: 20220304

REACTIONS (2)
  - Burning sensation [None]
  - Muscle spasms [None]

NARRATIVE: CASE EVENT DATE: 20220304
